FAERS Safety Report 24058984 (Version 1)
Quarter: 2024Q3

REPORT INFORMATION
  Report Type: Spontaneous
  Country: SK (occurrence: SK)
  Receive Date: 20240708
  Receipt Date: 20240708
  Transmission Date: 20241017
  Serious: Yes (Death, Disabling)
  Sender: SANOFI AVENTIS
  Company Number: SK-SA-SAC20240703000753

PATIENT
  Sex: Female

DRUGS (1)
  1. MYOZYME [Suspect]
     Active Substance: ALGLUCOSIDASE ALFA
     Indication: Glycogen storage disease type II
     Dosage: UNK
     Route: 065

REACTIONS (3)
  - Glycogen storage disease type II [Fatal]
  - Condition aggravated [Fatal]
  - Bedridden [Fatal]
